FAERS Safety Report 4610315-X (Version None)
Quarter: 2005Q1

REPORT INFORMATION
  Report Type: 
  Country: None (occurrence: None)
  Receive Date: 20050314
  Receipt Date: 20050303
  Transmission Date: 20050727
  Serious: Yes (Other)
  Sender: FDA-Public Use
  Company Number: 17048

PATIENT
  Age: 52 Year
  Sex: Female
  Weight: 108 kg

DRUGS (1)
  1. ACETYLCYSTEINE [Suspect]
     Indication: OVERDOSE
     Dosage: 3ML/IV
     Route: 042
     Dates: start: 20050303

REACTIONS (1)
  - MEDICATION ERROR [None]
